FAERS Safety Report 6262230-6 (Version None)
Quarter: 2009Q3

REPORT INFORMATION
  Report Type: 
  Country: None (occurrence: None)
  Receive Date: 20090708
  Receipt Date: 20090708
  Transmission Date: 20100115
  Serious: Yes (Hospitalization, Other)
  Sender: FDA-Public Use
  Company Number: None

PATIENT
  Age: 59 Year
  Sex: Female
  Weight: 54 kg

DRUGS (6)
  1. BUPROPION HCL [Suspect]
     Indication: COGNITIVE DISORDER
     Dosage: 300 MG 1 IN AM ORAL
     Route: 048
     Dates: start: 20090401, end: 20090501
  2. BUPROPION HCL [Suspect]
     Indication: ENCEPHALITIS
     Dosage: 300 MG 1 IN AM ORAL
     Route: 048
     Dates: start: 20090401, end: 20090501
  3. BUPROPION HCL [Suspect]
     Indication: MYALGIA
     Dosage: 300 MG 1 IN AM ORAL
     Route: 048
     Dates: start: 20090401, end: 20090501
  4. MAXZIDE [Concomitant]
  5. ATACAND [Concomitant]
  6. WELLBUTRIN XL [Suspect]

REACTIONS (13)
  - AMNESIA [None]
  - BLOOD PRESSURE INCREASED [None]
  - EMOTIONAL DISORDER [None]
  - HEADACHE [None]
  - HYPERHIDROSIS [None]
  - INSOMNIA [None]
  - MANIA [None]
  - MENTAL IMPAIRMENT [None]
  - MYALGIA [None]
  - OVERDOSE [None]
  - PAIN [None]
  - RESPIRATORY TRACT INFECTION [None]
  - THINKING ABNORMAL [None]
